FAERS Safety Report 5363240-3 (Version None)
Quarter: 2007Q2

REPORT INFORMATION
  Report Type: 
  Country: None (occurrence: None)
  Receive Date: 20070530
  Receipt Date: 20070327
  Transmission Date: 20071010
  Serious: No
  Sender: FDA-Public Use
  Company Number: 2006PV025723

PATIENT
  Age: 57 Year
  Sex: Female

DRUGS (5)
  1. BYETTA [Suspect]
     Indication: DIABETES MELLITUS NON-INSULIN-DEPENDENT
     Dosage: 10 MCG;BID;SC ; 5 MCG;BID;SC
     Route: 058
     Dates: start: 20050701, end: 20050801
  2. BYETTA [Suspect]
     Indication: DIABETES MELLITUS NON-INSULIN-DEPENDENT
     Dosage: 10 MCG;BID;SC ; 5 MCG;BID;SC
     Route: 058
     Dates: start: 20050801
  3. LANTUS [Concomitant]
  4. GLUCOTROL [Concomitant]
  5. NOVOLOG [Concomitant]

REACTIONS (5)
  - CONTUSION [None]
  - HYPOGLYCAEMIA [None]
  - JOINT SPRAIN [None]
  - MOUTH INJURY [None]
  - PRESYNCOPE [None]
